FAERS Safety Report 24359039 (Version 1)
Quarter: 2024Q3

REPORT INFORMATION
  Report Type: Spontaneous
  Country: FR (occurrence: FR)
  Receive Date: 20240924
  Receipt Date: 20240924
  Transmission Date: 20241016
  Serious: Yes (Other)
  Sender: TEVA
  Company Number: None

PATIENT
  Age: 71 Year
  Sex: Male

DRUGS (3)
  1. CLOZAPINE [Suspect]
     Active Substance: CLOZAPINE
     Indication: Dementia
     Route: 048
     Dates: start: 20240823
  2. MIDAZOLAM [Suspect]
     Active Substance: MIDAZOLAM
     Indication: Dementia
     Route: 042
     Dates: start: 20240826
  3. PIMAVANSERIN [Suspect]
     Active Substance: PIMAVANSERIN
     Indication: Hallucination
     Route: 048
     Dates: start: 20240731

REACTIONS (1)
  - Bradycardia [Recovering/Resolving]

NARRATIVE: CASE EVENT DATE: 20240902
